FAERS Safety Report 12104350 (Version 1)
Quarter: 2016Q1

REPORT INFORMATION
  Report Type: Spontaneous
  Country: GB (occurrence: GB)
  Receive Date: 20160223
  Receipt Date: 20160223
  Transmission Date: 20160526
  Serious: Yes (Death)
  Sender: FDA-Public Use
  Company Number: GB-TEVA-637547ISR

PATIENT
  Sex: Male

DRUGS (9)
  1. ARIPIPRAZOLE. [Interacting]
     Active Substance: ARIPIPRAZOLE
  2. ETHYLPHENIDATE [Interacting]
     Active Substance: ETHYLPHENIDATE
  3. ZOPICLONE [Interacting]
     Active Substance: ZOPICLONE
  4. 2-ETHYLIDENE-1,5-DIMETHYL-3,3-DIPHENYLPYRROLIDINE [Interacting]
     Active Substance: METHADONE HYDROCHLORIDE
  5. 2-AMINOINDANE [Interacting]
     Active Substance: 2-AMINOINDANE
  6. SERTRALINE [Suspect]
     Active Substance: SERTRALINE HYDROCHLORIDE
  7. DEHYDROARIPIPRAZOLE [Interacting]
     Active Substance: DEHYDROARIPIPRAZOLE
  8. ETHANOL [Interacting]
     Active Substance: ALCOHOL
  9. METHADONE [Interacting]
     Active Substance: METHADONE HYDROCHLORIDE

REACTIONS (2)
  - Toxicity to various agents [Fatal]
  - Drug interaction [Unknown]
